FAERS Safety Report 19419312 (Version 3)
Quarter: 2021Q2

REPORT INFORMATION
  Report Type: Spontaneous
  Country: HR (occurrence: HR)
  Receive Date: 20210615
  Receipt Date: 20210630
  Transmission Date: 20210717
  Serious: Yes (Other)
  Sender: FDA-Public Use
  Company Number: HR-PFIZER INC-2021661983

PATIENT
  Age: 57 Year
  Sex: Female

DRUGS (13)
  1. REVOLADE [Suspect]
     Active Substance: ELTROMBOPAG OLAMINE
     Dosage: 50 MG (DOSE TAPERING)
     Route: 065
  2. METHYLPREDNISOLONE. [Suspect]
     Active Substance: METHYLPREDNISOLONE
     Dosage: UNK
     Route: 065
  3. LEVOTHYROXINE. [Suspect]
     Active Substance: LEVOTHYROXINE
     Dosage: 1X/DAY (QD)
     Route: 048
  4. ATGAM [Suspect]
     Active Substance: EQUINE THYMOCYTE IMMUNE GLOBULIN
     Dosage: HORSE ANTI?THYMOCYTE GLOBULIN, OVER 8 DAYS
     Route: 065
  5. VITAMIN D3 [Suspect]
     Active Substance: CHOLECALCIFEROL
     Dosage: 1X/DAY (QD)
     Route: 065
  6. CICLOSPORIN [Suspect]
     Active Substance: CYCLOSPORINE
     Indication: APLASTIC ANAEMIA
     Dosage: UNK
     Route: 065
  7. POTASSIUM [Suspect]
     Active Substance: POTASSIUM
     Dosage: UNK
     Route: 048
  8. PANTOPRAZOLE [Suspect]
     Active Substance: PANTOPRAZOLE
     Dosage: UNK
     Route: 048
  9. REVOLADE [Suspect]
     Active Substance: ELTROMBOPAG OLAMINE
     Indication: APLASTIC ANAEMIA
     Dosage: 150 MG
     Route: 065
  10. REVOLADE [Suspect]
     Active Substance: ELTROMBOPAG OLAMINE
     Dosage: 100 MG
     Route: 065
  11. REVOLADE [Suspect]
     Active Substance: ELTROMBOPAG OLAMINE
     Dosage: 100 MG (DOSE TAPERING)
     Route: 065
  12. REVOLADE [Suspect]
     Active Substance: ELTROMBOPAG OLAMINE
     Dosage: 50 MG, ALTERNATE DAY (QOD)
     Route: 065
  13. DEFERASIROX. [Suspect]
     Active Substance: DEFERASIROX
     Dosage: 500 MILLIGRAM, BID
     Route: 048

REACTIONS (15)
  - Headache [Unknown]
  - Hypertension [Unknown]
  - Treatment failure [Recovered/Resolved]
  - Cataract [Unknown]
  - Subdural haematoma [Unknown]
  - Klebsiella infection [Unknown]
  - Sepsis [Recovered/Resolved]
  - Epilepsy [Unknown]
  - Myoclonic epilepsy [Unknown]
  - Partial seizures [Unknown]
  - Haemosiderosis [Unknown]
  - Urinary tract infection [Unknown]
  - Febrile neutropenia [Recovered/Resolved]
  - Hepatitis B reactivation [Recovered/Resolved]
  - Seizure [Unknown]
